FAERS Safety Report 18024356 (Version 1)
Quarter: 2020Q3

REPORT INFORMATION
  Report Type: Spontaneous
  Country: AT (occurrence: AT)
  Receive Date: 20200715
  Receipt Date: 20200715
  Transmission Date: 20201103
  Serious: Yes (Death)
  Sender: FDA-Public Use
  Company Number: AT-SA-2020SA177953

PATIENT

DRUGS (1)
  1. DUPILUMAB [Suspect]
     Active Substance: DUPILUMAB
     Indication: EXPOSURE DURING PREGNANCY
     Route: 064

REACTIONS (2)
  - Trisomy 21 [Fatal]
  - Paternal exposure before pregnancy [Fatal]
